FAERS Safety Report 22372142 (Version 2)
Quarter: 2023Q2

REPORT INFORMATION
  Report Type: Spontaneous
  Country: US (occurrence: US)
  Receive Date: 20230526
  Receipt Date: 20230606
  Transmission Date: 20230721
  Serious: Yes (Hospitalization, Other)
  Sender: FDA-Public Use
  Company Number: US-009507513-2305USA006763

PATIENT
  Age: 13 Year
  Sex: Female
  Weight: 29.2 kg

DRUGS (4)
  1. WELIREG [Suspect]
     Active Substance: BELZUTIFAN
     Indication: Neoplasm
     Dosage: 80 MG DAILY
     Route: 048
     Dates: start: 20230120, end: 2023
  2. WELIREG [Suspect]
     Active Substance: BELZUTIFAN
     Dosage: 40MG ONCE A DAY
     Route: 048
     Dates: start: 20230315, end: 20230323
  3. WELIREG [Suspect]
     Active Substance: BELZUTIFAN
     Dosage: 40 MG TWICE A WEEK
     Route: 048
     Dates: start: 20230402, end: 20230427
  4. LEVOTHYROXINE [Concomitant]
     Active Substance: LEVOTHYROXINE
     Dosage: 75 MICROGRAMS DAILY

REACTIONS (6)
  - Addison^s disease [Recovering/Resolving]
  - Hypotension [Recovering/Resolving]
  - Dizziness [Recovering/Resolving]
  - Dyspnoea [Recovering/Resolving]
  - Fatigue [Recovering/Resolving]
  - Off label use [Unknown]

NARRATIVE: CASE EVENT DATE: 20230120
